FAERS Safety Report 21254003 (Version 1)
Quarter: 2022Q3

REPORT INFORMATION
  Report Type: Spontaneous
  Country: US (occurrence: US)
  Receive Date: 20220825
  Receipt Date: 20220825
  Transmission Date: 20221027
  Serious: No
  Sender: FDA-Public Use
  Company Number: US-009507513-2208USA007657

PATIENT
  Age: 33 Year
  Sex: Female

DRUGS (4)
  1. CUBICIN [Suspect]
     Active Substance: DAPTOMYCIN
     Indication: Staphylococcal bacteraemia
     Dosage: UNK
     Route: 042
     Dates: start: 2019
  2. VANCOMYCIN [Concomitant]
     Active Substance: VANCOMYCIN
     Indication: Staphylococcal bacteraemia
     Dosage: UNK
     Route: 042
     Dates: start: 2019
  3. HEPARIN [Concomitant]
     Active Substance: HEPARIN SODIUM
     Indication: Cavernous sinus thrombosis
  4. HEPARIN [Concomitant]
     Active Substance: HEPARIN SODIUM
     Indication: Cerebral venous sinus thrombosis

REACTIONS (1)
  - Product use in unapproved indication [Unknown]

NARRATIVE: CASE EVENT DATE: 20190101
